FAERS Safety Report 23664907 (Version 1)
Quarter: 2024Q1

REPORT INFORMATION
  Report Type: Spontaneous
  Country: IT (occurrence: IT)
  Receive Date: 20240322
  Receipt Date: 20240322
  Transmission Date: 20240409
  Serious: Yes (Hospitalization)
  Sender: FDA-Public Use
  Company Number: None

PATIENT
  Age: 88 Year
  Sex: Female
  Weight: 46 kg

DRUGS (5)
  1. FUROSEMIDE [Suspect]
     Active Substance: FUROSEMIDE
     Indication: Cardiac failure
     Dosage: 25 MILLIGRAM (25 MG 1 TABLET AT 8 AM + 1 TABLET AT 3 PM)
     Route: 048
     Dates: start: 202306
  2. GLYXAMBI [Suspect]
     Active Substance: EMPAGLIFLOZIN\LINAGLIPTIN
     Indication: Type 2 diabetes mellitus
     Dosage: 1 DOSAGE FORM, QD (25/5 MG 1 TABLET DAY)
     Route: 048
     Dates: start: 202303
  3. DIAMICRON [Concomitant]
     Indication: Type 2 diabetes mellitus
     Dosage: 60 MILLIGRAM, QD (60 MG 1 TABLET PER DAY)
     Route: 048
     Dates: start: 202302
  4. BISOPROLOL [Concomitant]
     Active Substance: BISOPROLOL\BISOPROLOL FUMARATE
     Indication: Cardiac failure
     Dosage: 1.25 MILLIGRAM, QD (1.25 MG 1 TABLET DAY)
     Route: 048
     Dates: start: 20240221, end: 20240224
  5. SPIRONOLACTONE [Concomitant]
     Active Substance: SPIRONOLACTONE
     Indication: Cardiac failure
     Dosage: 100 MILLIGRAM, QD (100 MG 1 TABLET DAY)
     Route: 048
     Dates: start: 202306

REACTIONS (1)
  - Hypokalaemia [Recovering/Resolving]

NARRATIVE: CASE EVENT DATE: 20240224
